FAERS Safety Report 10645610 (Version 2)
Quarter: 2015Q1

REPORT INFORMATION
  Report Type: Report from Study
  Country: CA (occurrence: CA)
  Receive Date: 20141211
  Receipt Date: 20150320
  Transmission Date: 20150720
  Serious: Yes (Hospitalization, Other)
  Sender: FDA-Public Use
  Company Number: CA-JNJFOC-20141202319

PATIENT
  Age: 45 Year
  Sex: Female
  Weight: 106 kg

DRUGS (7)
  1. SYNTHROID [Concomitant]
     Active Substance: LEVOTHYROXINE SODIUM
     Route: 048
  2. BUPROPION XL [Concomitant]
     Active Substance: BUPROPION
     Route: 048
  3. ALYSENA [Concomitant]
     Dosage: 100/20 MCG DAILY
     Route: 065
  4. REMICADE [Suspect]
     Active Substance: INFLIXIMAB
     Indication: CROHN^S DISEASE
     Route: 042
     Dates: start: 20150314
  5. REMICADE [Suspect]
     Active Substance: INFLIXIMAB
     Indication: CROHN^S DISEASE
     Route: 042
     Dates: start: 20030918
  6. MORPHINE [Concomitant]
     Active Substance: MORPHINE
     Dosage: 1 TABLET EVERY 3-4 HOURS
     Route: 048
  7. TYLENOL EXTRA STRENGTH [Concomitant]
     Active Substance: ACETAMINOPHEN
     Route: 065

REACTIONS (5)
  - Post procedural haemorrhage [Unknown]
  - Back pain [Unknown]
  - Endometrial cancer [Recovered/Resolved]
  - Abdominal pain [Unknown]
  - Thyroid cancer [Recovered/Resolved]

NARRATIVE: CASE EVENT DATE: 2009
